FAERS Safety Report 6652920-5 (Version None)
Quarter: 2010Q1

REPORT INFORMATION
  Report Type: 
  Country: None (occurrence: None)
  Receive Date: 20100326
  Receipt Date: 20100313
  Transmission Date: 20100710
  Serious: Yes (Other)
  Sender: FDA-Public Use
  Company Number: IT-JNJFOC-20090602096

PATIENT
  Sex: Male

DRUGS (3)
  1. LEVOFLOXACIN [Suspect]
     Indication: BRONCHOPNEUMONIA
     Route: 048
  2. CLARITHROMYCIN [Concomitant]
     Route: 065
  3. PREDNISONE TAB [Concomitant]
     Route: 065

REACTIONS (1)
  - EPILEPSY [None]
